FAERS Safety Report 18254789 (Version 2)
Quarter: 2020Q4

REPORT INFORMATION
  Report Type: Spontaneous
  Country: US (occurrence: US)
  Receive Date: 20200911
  Receipt Date: 20201119
  Transmission Date: 20210113
  Serious: Yes (Hospitalization, Other)
  Sender: FDA-Public Use
  Company Number: US-BRISTOL-MYERS SQUIBB COMPANY-BMS-2020-072327

PATIENT
  Sex: Female
  Weight: 63.5 kg

DRUGS (2)
  1. ORENCIA [Suspect]
     Active Substance: ABATACEPT
     Indication: PSORIATIC ARTHROPATHY
     Dosage: EVERY TWO WEEKS X THREE DOSES; CURRENTLY ONCE A MONTH
     Route: 042
     Dates: start: 2020
  2. ORENCIA [Suspect]
     Active Substance: ABATACEPT
     Indication: RHEUMATOID ARTHRITIS

REACTIONS (3)
  - Vomiting [Unknown]
  - Pancytopenia [Unknown]
  - Diarrhoea [Unknown]
